FAERS Safety Report 5127831-7 (Version None)
Quarter: 2006Q4

REPORT INFORMATION
  Report Type: 
  Country: None (occurrence: None)
  Receive Date: 20061016
  Receipt Date: 20060830
  Transmission Date: 20070319
  Serious: Yes (Other)
  Sender: FDA-Public Use
  Company Number: US-ROCHE-461639

PATIENT
  Age: 79 Year
  Sex: Female
  Weight: 58.1 kg

DRUGS (8)
  1. XELODA [Suspect]
     Indication: COLORECTAL CANCER
     Route: 048
     Dates: start: 20060823, end: 20060914
  2. PERCOCET [Concomitant]
  3. AMBIEN [Concomitant]
  4. LORAZEPAM [Concomitant]
  5. NEURONTIN [Concomitant]
  6. PREDNISONE TAB [Concomitant]
  7. SYNTHROID [Concomitant]
  8. TOPROL-XL [Concomitant]

REACTIONS (5)
  - LUNG DISORDER [None]
  - LUNG OPERATION [None]
  - MALAISE [None]
  - SINGLE FUNCTIONAL KIDNEY [None]
  - THROMBOSIS [None]
